FAERS Safety Report 21910525 (Version 2)
Quarter: 2023Q1

REPORT INFORMATION
  Report Type: Spontaneous
  Country: CH (occurrence: CH)
  Receive Date: 20230125
  Receipt Date: 20230214
  Transmission Date: 20230418
  Serious: Yes (Other)
  Sender: FDA-Public Use
  Company Number: CH-SANOFI-01452757

PATIENT
  Age: 64 Year
  Sex: Female
  Weight: 69 kg

DRUGS (1)
  1. DUPIXENT [Suspect]
     Active Substance: DUPILUMAB
     Dosage: 300 MG, QOW

REACTIONS (3)
  - Skin graft rejection [Not Recovered/Not Resolved]
  - Blood product refusal [Not Recovered/Not Resolved]
  - Jaw operation [Not Recovered/Not Resolved]

NARRATIVE: CASE EVENT DATE: 20221114
